FAERS Safety Report 9465575 (Version 2)
Quarter: 2013Q3

REPORT INFORMATION
  Report Type: Spontaneous
  Country: BE (occurrence: BE)
  Receive Date: 20130820
  Receipt Date: 20130820
  Transmission Date: 20140515
  Serious: Yes (Other)
  Sender: FDA-Public Use
  Company Number: BE-JNJFOC-20121204513

PATIENT
  Age: 29 Year
  Sex: Female

DRUGS (2)
  1. SPORANOX [Suspect]
     Indication: VULVOVAGINAL MYCOTIC INFECTION
     Dosage: 4 CAPSULES
     Route: 065
     Dates: start: 20121201, end: 20121202
  2. METHYLDOPA [Suspect]
     Indication: HYPERTENSION
     Route: 048
     Dates: start: 20130622, end: 20130630

REACTIONS (3)
  - Exposure during pregnancy [Recovered/Resolved]
  - Hypertension [Unknown]
  - Premature labour [Recovered/Resolved]
